FAERS Safety Report 5034504-8 (Version None)
Quarter: 2006Q2

REPORT INFORMATION
  Report Type: 
  Country: None (occurrence: None)
  Receive Date: 20060622
  Receipt Date: 20060622
  Transmission Date: 20061013
  Serious: No
  Sender: FDA-Public Use
  Company Number: None

PATIENT
  Sex: Male
  Weight: 81.6475 kg

DRUGS (2)
  1. REVLIMID [Suspect]
     Indication: MYELODYSPLASTIC SYNDROME
     Dosage: 10 MG QD PO, 10 MG QOD  PO
     Route: 048
     Dates: start: 20060517, end: 20060601
  2. REVLIMID [Suspect]
     Indication: MYELODYSPLASTIC SYNDROME
     Dosage: 10 MG QD PO, 10 MG QOD  PO
     Route: 048
     Dates: start: 20060601, end: 20060605

REACTIONS (1)
  - LIVER FUNCTION TEST ABNORMAL [None]
